FAERS Safety Report 11802193 (Version 3)
Quarter: 2015Q4

REPORT INFORMATION
  Report Type: Spontaneous
  Country: US (occurrence: US)
  Receive Date: 20151204
  Receipt Date: 20151224
  Transmission Date: 20160305
  Serious: Yes (Hospitalization, Other)
  Sender: FDA-Public Use
  Company Number: US-PFIZER INC-2015407720

PATIENT
  Age: 62 Year
  Sex: Female

DRUGS (4)
  1. BUSPAR [Concomitant]
     Active Substance: BUSPIRONE HYDROCHLORIDE
     Dosage: UNK
     Dates: start: 1975
  2. GABAPENTIN. [Suspect]
     Active Substance: GABAPENTIN
     Indication: OSTEOPOROSIS
  3. GABAPENTIN. [Suspect]
     Active Substance: GABAPENTIN
     Indication: FIBROMYALGIA
     Dosage: UNK
     Dates: start: 1996
  4. GABAPENTIN. [Suspect]
     Active Substance: GABAPENTIN
     Indication: BACK DISORDER

REACTIONS (6)
  - Pancreatitis chronic [Not Recovered/Not Resolved]
  - Infection [Unknown]
  - Dehydration [Unknown]
  - Drug intolerance [Unknown]
  - Product use issue [Not Recovered/Not Resolved]
  - Malnutrition [Unknown]

NARRATIVE: CASE EVENT DATE: 1999
